FAERS Safety Report 16346809 (Version 2)
Quarter: 2019Q2

REPORT INFORMATION
  Report Type: Report from Study
  Country: MX (occurrence: MX)
  Receive Date: 20190523
  Receipt Date: 20190607
  Transmission Date: 20190711
  Serious: Yes (Death, Hospitalization, Other)
  Sender: FDA-Public Use
  Company Number: PHHY2019MX118797

PATIENT
  Sex: Male
  Weight: 75 kg

DRUGS (2)
  1. DANAZOL. [Concomitant]
     Active Substance: DANAZOL
     Indication: PRODUCT USED FOR UNKNOWN INDICATION
     Dosage: 300 MG, QD (SINCE 15 YEARS)
     Route: 065
  2. REVOLADE [Suspect]
     Active Substance: ELTROMBOPAG
     Indication: PLATELET COUNT DECREASED
     Dosage: 1 OR 2 DOSE DAILY (START DATE: 4 YEARS AGO)
     Route: 048
     Dates: end: 201901

REACTIONS (4)
  - Diabetes mellitus [Not Recovered/Not Resolved]
  - Platelet count abnormal [Unknown]
  - Mucormycosis [Fatal]
  - Hepatic cirrhosis [Not Recovered/Not Resolved]

NARRATIVE: CASE EVENT DATE: 2018
